FAERS Safety Report 9698492 (Version 2)
Quarter: 2020Q3

REPORT INFORMATION
  Report Type: Report from Study
  Country: EC (occurrence: EC)
  Receive Date: 20131120
  Receipt Date: 20150813
  Transmission Date: 20201104
  Serious: Yes (Disabling)
  Sender: FDA-Public Use
  Company Number: EC-ROCHE-1305289

PATIENT
  Age: 2 Month
  Sex: Female

DRUGS (2)
  1. GLIBENCLAMIDE/METFORMIN [Concomitant]
     Active Substance: GLYBURIDE\METFORMIN
     Indication: TYPE 2 DIABETES MELLITUS
     Route: 048
  2. IBANDRONIC ACID. [Suspect]
     Active Substance: IBANDRONIC ACID
     Indication: OSTEOPOROSIS
     Route: 042
     Dates: start: 20111125

REACTIONS (1)
  - Hydrocephalus [Not Recovered/Not Resolved]

NARRATIVE: CASE EVENT DATE: 201307
